FAERS Safety Report 5199822-1 (Version None)
Quarter: 2007Q1

REPORT INFORMATION
  Report Type: 
  Country: None (occurrence: None)
  Receive Date: 20070105
  Receipt Date: 20061228
  Transmission Date: 20070707
  Serious: Yes (Death, Life-Threatening, Hospitalization)
  Sender: FDA-Public Use
  Company Number: FR-AVENTIS-200612530FR

PATIENT
  Age: 65 Year
  Sex: Female

DRUGS (3)
  1. ARAVA [Suspect]
     Indication: RHEUMATOID ARTHRITIS
     Route: 048
     Dates: start: 20060401, end: 20060607
  2. SULFASALAZINE [Concomitant]
     Indication: RHEUMATOID ARTHRITIS
     Dates: end: 20060301
  3. CORTICOSTEROIDS [Concomitant]
     Indication: RHEUMATOID ARTHRITIS
     Dates: end: 20060701

REACTIONS (12)
  - ACUTE RESPIRATORY DISTRESS SYNDROME [None]
  - DYSPNOEA [None]
  - FAECALOMA [None]
  - HYPERTENSION [None]
  - HYPOTENSION [None]
  - HYPOXIA [None]
  - INTERSTITIAL LUNG DISEASE [None]
  - NO THERAPEUTIC RESPONSE [None]
  - PNEUMOMEDIASTINUM [None]
  - PNEUMOTHORAX [None]
  - PYREXIA [None]
  - RECTAL HAEMORRHAGE [None]
